FAERS Safety Report 24623999 (Version 1)
Quarter: 2024Q4

REPORT INFORMATION
  Report Type: Spontaneous
  Country: FR (occurrence: FR)
  Receive Date: 20241115
  Receipt Date: 20241115
  Transmission Date: 20250115
  Serious: No
  Sender: ALKEM
  Company Number: FR-ALKEM LABORATORIES LIMITED-FR-ALKEM-2024-12024

PATIENT
  Age: 8 Year
  Sex: Female

DRUGS (1)
  1. METHYLPHENIDATE HYDROCHLORIDE [Suspect]
     Active Substance: METHYLPHENIDATE HYDROCHLORIDE
     Indication: Foetal alcohol spectrum disorder
     Dosage: UNK (LONG-LASTING CAPSULE)
     Route: 065

REACTIONS (3)
  - Headache [Unknown]
  - Abdominal pain [Unknown]
  - Treatment noncompliance [Unknown]
